FAERS Safety Report 5414180-2 (Version None)
Quarter: 2007Q3

REPORT INFORMATION
  Report Type: 
  Country: None (occurrence: None)
  Receive Date: 20070814
  Receipt Date: 20070813
  Transmission Date: 20080115
  Serious: Yes (Hospitalization)
  Sender: FDA-Public Use
  Company Number: TW-BOEHRINGER INGELHEIM PHARMACEUTICALS, INC.-2007-BP-17605SG

PATIENT
  Sex: Female

DRUGS (2)
  1. NEVIRAPINE [Suspect]
     Indication: HIV INFECTION
     Route: 048
     Dates: start: 20070410, end: 20070604
  2. COMBIVIR [Concomitant]
     Indication: HIV INFECTION
     Dosage: DAILY DOSE: 300/600 MG
     Route: 048
     Dates: start: 20000616

REACTIONS (2)
  - BILIARY TRACT INFECTION [None]
  - RASH [None]
